FAERS Safety Report 8845454 (Version 1)
Quarter: 2012Q4

REPORT INFORMATION
  Report Type: 
  Country: US (occurrence: US)
  Receive Date: 20121017
  Receipt Date: 20121017
  Transmission Date: 20130627
  Serious: Yes (Other)
  Sender: FDA-Public Use
  Company Number: PHEH2012US020153

PATIENT
  Sex: Female

DRUGS (25)
  1. RECLAST [Suspect]
     Indication: OSTEOPOROSIS
     Dosage: UNK UKN, yearly
     Route: 042
  2. SIMVASTATIN [Concomitant]
     Indication: BLOOD CHOLESTEROL
  3. SINGULAIR [Concomitant]
     Indication: HYPERSENSITIVITY
  4. VITAMIN D [Concomitant]
  5. VITAMIN B12 [Concomitant]
  6. PROAIR HFA [Concomitant]
     Indication: ASTHMA
  7. LOTEMAX [Concomitant]
     Indication: DRY EYE
  8. METHYLPREDNISOLONE [Concomitant]
     Indication: RHEUMATOID ARTHRITIS
  9. METHOTREXATE [Concomitant]
     Indication: RHEUMATOID ARTHRITIS
  10. METFORMIN [Concomitant]
     Indication: DIABETES MELLITUS
  11. LUNESTA [Concomitant]
     Indication: SLEEP APNOEA SYNDROME
  12. KLOR-CON [Concomitant]
  13. IRON [Concomitant]
  14. IBUPROFEN [Concomitant]
     Indication: PAIN
  15. HYDROCODONE [Concomitant]
     Indication: PAIN
  16. FUROSEMIDE [Concomitant]
  17. FOLIC ACID [Concomitant]
  18. FLUTICASONE PROPIONATE [Concomitant]
  19. DICYCLOMINE [Concomitant]
     Indication: ABDOMINAL PAIN UPPER
  20. CENTRUM [Concomitant]
  21. CALTRATE [Concomitant]
  22. BIOTIN [Concomitant]
  23. ALPRAZOLAM [Concomitant]
     Indication: ANXIETY
  24. OSTEO BI-FLEX [Concomitant]
     Indication: ARTHRALGIA
  25. ENBREL [Concomitant]
     Indication: PAIN
     Dosage: UNK UKN, UNK

REACTIONS (15)
  - Latent tuberculosis [Unknown]
  - Jaw disorder [Unknown]
  - Trismus [Unknown]
  - Feeling of body temperature change [Unknown]
  - Migraine [Unknown]
  - Mobility decreased [Unknown]
  - Anxiety [Unknown]
  - Pain [Unknown]
  - Influenza like illness [Unknown]
  - Pyrexia [Unknown]
  - Chills [Unknown]
  - Myalgia [Unknown]
  - Back pain [Unknown]
  - Pain in jaw [Unknown]
  - Arthralgia [Unknown]
